FAERS Safety Report 6255383-7 (Version None)
Quarter: 2009Q3

REPORT INFORMATION
  Report Type: 
  Country: None (occurrence: None)
  Receive Date: 20090702
  Receipt Date: 20090623
  Transmission Date: 20100115
  Serious: Yes (Other)
  Sender: FDA-Public Use
  Company Number: PHHY2009BR25523

PATIENT
  Age: 60 Year
  Sex: Female

DRUGS (2)
  1. TEGRETOL [Suspect]
     Dosage: UNK
  2. TEGRETOL [Suspect]
     Dosage: UNK

REACTIONS (1)
  - GASTRITIS [None]
